FAERS Safety Report 7513555-5 (Version None)
Quarter: 2011Q2

REPORT INFORMATION
  Report Type: 
  Country: None (occurrence: None)
  Receive Date: 20110531
  Receipt Date: 20100908
  Transmission Date: 20111010
  Serious: Yes (Hospitalization)
  Sender: FDA-Public Use
  Company Number: BR-ROCHE-692083

PATIENT
  Sex: Female
  Weight: 70 kg

DRUGS (8)
  1. FLUOROURACIL [Suspect]
     Dosage: DOSE LEVEL: 600 MG/M2, FORM; VIALS
     Route: 042
     Dates: start: 20100528
  2. EPIRUBICIN [Suspect]
     Dosage: DOSE LEVEL: 90 MG/M2, FORM; VIALS
     Route: 042
     Dates: start: 20100528
  3. BEVACIZUMAB [Suspect]
     Dosage: DOSE LEVEL: 15 MG/KG. FORM; VIALS
     Route: 042
     Dates: start: 20100223, end: 20100416
  4. HYDROCHLOROTHIAZIDE [Concomitant]
     Dates: start: 20090401
  5. CYCLOPHOSPHAMIDE [Suspect]
     Dosage: DOSE LEVEL: 600 MG/M2
     Route: 042
     Dates: start: 20100528
  6. TRASTUZUMAB [Suspect]
     Dosage: DOSE LEVEL; 8 MG/KG. FORM: VIALS
     Route: 042
     Dates: start: 20100223
  7. CAPTOPRIL [Concomitant]
     Dosage: FREQUENCY NOT REPORTED
     Dates: start: 20090401
  8. DOCETAXEL [Suspect]
     Dosage: DOSE LEVEL; 100 MG/M2. FORM: VIALS
     Route: 042
     Dates: start: 20100223

REACTIONS (1)
  - GASTRIC PERFORATION [None]
